FAERS Safety Report 16752750 (Version 4)
Quarter: 2020Q1

REPORT INFORMATION
  Report Type: Report from Study
  Country: None (occurrence: US)
  Receive Date: 20190828
  Receipt Date: 20200221
  Transmission Date: 20200409
  Serious: Yes (Hospitalization, Other)
  Sender: FDA-Public Use
  Company Number: US-ABBVIE-19K-163-2867870-00

PATIENT
  Age: 43 Year
  Sex: Female

DRUGS (2)
  1. HUMIRA [Suspect]
     Active Substance: ADALIMUMAB
     Route: 058
  2. HUMIRA [Suspect]
     Active Substance: ADALIMUMAB
     Indication: PSORIATIC ARTHROPATHY
     Route: 058

REACTIONS (17)
  - Incorrect dose administered [Unknown]
  - Intracranial pressure increased [Unknown]
  - Mobility decreased [Unknown]
  - Back pain [Unknown]
  - Cestode infection [Unknown]
  - Ankylosing spondylitis [Unknown]
  - Formication [Unknown]
  - Memory impairment [Unknown]
  - Psoriatic arthropathy [Unknown]
  - Joint effusion [Unknown]
  - Weight decreased [Unknown]
  - Joint swelling [Unknown]
  - Adverse event [Unknown]
  - Joint range of motion decreased [Unknown]
  - Injection site pain [Unknown]
  - Therapeutic response shortened [Unknown]
  - Helicobacter infection [Unknown]

NARRATIVE: CASE EVENT DATE: 201902
